FAERS Safety Report 4445589-1 (Version None)
Quarter: 2004Q3

REPORT INFORMATION
  Report Type: 
  Country: None (occurrence: None)
  Receive Date: 20040910
  Receipt Date: 20040827
  Transmission Date: 20050211
  Serious: Yes (Hospitalization)
  Sender: FDA-Public Use
  Company Number: CH-BRISTOL-MYERS SQUIBB COMPANY-12688800

PATIENT
  Age: 59 Year
  Sex: Male

DRUGS (8)
  1. GLUCOPHAGE [Suspect]
     Indication: DIABETES MELLITUS
     Route: 048
     Dates: end: 20040719
  2. AMARYL [Suspect]
     Indication: DIABETES MELLITUS
     Route: 048
     Dates: end: 20040719
  3. MADOPAR [Concomitant]
     Dosage: DOSE VALUE:  100MG/25MG
     Route: 048
  4. ANAFRANIL [Concomitant]
     Route: 048
  5. XANAX [Concomitant]
     Route: 048
  6. ATORVASTATIN CALCIUM [Concomitant]
     Route: 048
  7. REMERON [Concomitant]
     Route: 048
  8. TEMESTA [Concomitant]
     Route: 048

REACTIONS (3)
  - HYPOGLYCAEMIA [None]
  - RENAL IMPAIRMENT [None]
  - UROSEPSIS [None]
